FAERS Safety Report 4608546-8 (Version None)
Quarter: 2005Q1

REPORT INFORMATION
  Report Type: 
  Country: None (occurrence: None)
  Receive Date: 20050311
  Receipt Date: 20050311
  Transmission Date: 20050727
  Serious: Yes (Hospitalization)
  Sender: FDA-Public Use
  Company Number: None

PATIENT
  Age: 51 Year
  Sex: Male
  Weight: 174.6349 kg

DRUGS (19)
  1. PRAVASTATIN [Suspect]
     Indication: HYPERLIPIDAEMIA
     Dosage: 40 MG QHS ORAL
     Route: 048
     Dates: start: 20041215, end: 20050227
  2. GEMFIBROZIL [Suspect]
     Indication: HYPERLIPIDAEMIA
     Dosage: 600 MG BID ORAL
     Route: 048
     Dates: start: 20041215, end: 20050227
  3. METOLAZONE [Concomitant]
  4. AVANDIA [Concomitant]
  5. CARTIA XT [Concomitant]
  6. FOLIC ACID [Concomitant]
  7. IMDUR [Concomitant]
  8. PLAVIX [Concomitant]
  9. PROZAC [Concomitant]
  10. ASPIRIN [Concomitant]
  11. PROTONIX [Concomitant]
  12. PEPCID [Concomitant]
  13. DOCUSATE [Concomitant]
  14. LISINOPRIL [Concomitant]
  15. LOPRESSOR [Concomitant]
  16. COMBIVENT [Concomitant]
  17. DURAGESIC-100 [Concomitant]
  18. SINGULAIR [Concomitant]
  19. TYLOX [Concomitant]

REACTIONS (3)
  - PNEUMONIA [None]
  - RENAL FAILURE ACUTE [None]
  - RHABDOMYOLYSIS [None]
